FAERS Safety Report 22068638 (Version 1)
Quarter: 2023Q1

REPORT INFORMATION
  Report Type: Spontaneous
  Country: SI (occurrence: SI)
  Receive Date: 20230307
  Receipt Date: 20230307
  Transmission Date: 20230418
  Serious: Yes (Other)
  Sender: FDA-Public Use
  Company Number: SI-BAYER-2023A027661

PATIENT
  Age: 40 Year
  Sex: Male

DRUGS (1)
  1. EYLEA [Suspect]
     Active Substance: AFLIBERCEPT
     Indication: Product used for unknown indication
     Dosage: SOLUTION FOR INJECTION

REACTIONS (3)
  - Macular thickening [Unknown]
  - Visual impairment [Unknown]
  - Eye opacity [Unknown]

NARRATIVE: CASE EVENT DATE: 20210201
